FAERS Safety Report 25986623 (Version 1)
Quarter: 2025Q4

REPORT INFORMATION
  Report Type: Spontaneous
  Country: US (occurrence: US)
  Receive Date: 20251031
  Receipt Date: 20251031
  Transmission Date: 20260118
  Serious: No
  Sender: Tarsus Pharmaceuticals
  Company Number: US-TARSUS PHARMACEUTICALS-TSP-US-2025-000884

PATIENT

DRUGS (1)
  1. XDEMVY [Suspect]
     Active Substance: LOTILANER
     Indication: Product used for unknown indication
     Dosage: 1 DROP, BID ( INSTILL 1 DROP INTO BOTH EYES IN THE MORNING AND 1 DROP BEFORE BEDTIME FOR 42 DAYS)
     Route: 047
     Dates: start: 20250820, end: 20250821

REACTIONS (5)
  - Product delivery mechanism issue [Unknown]
  - Suspected product contamination [Unknown]
  - Wrong technique in product usage process [Unknown]
  - Product dose omission issue [Unknown]
  - Therapy interrupted [Unknown]
